FAERS Safety Report 8243530-7 (Version None)
Quarter: 2012Q1

REPORT INFORMATION
  Report Type: 
  Country: None (occurrence: None)
  Receive Date: 20120329
  Receipt Date: 20120326
  Transmission Date: 20120608
  Serious: Yes (Hospitalization, Other)
  Sender: FDA-Public Use
  Company Number: PHHY2012DE025883

PATIENT
  Sex: Male
  Weight: 106 kg

DRUGS (14)
  1. ATACAND HCT [Concomitant]
     Indication: HYPERTENSION
     Route: 048
     Dates: start: 20090427
  2. DIURETICS [Concomitant]
  3. ANTICOAGULANTS [Concomitant]
     Route: 048
  4. EBRANTIL [Concomitant]
     Indication: HYPERTENSION
     Route: 048
     Dates: start: 20100830
  5. FELODIPINE [Concomitant]
     Indication: HYPERTENSION
     Dates: start: 20110708
  6. RASILEZ HCT [Suspect]
     Indication: HYPERTENSION
     Route: 048
     Dates: start: 20110207
  7. METOPROLOL SUCCINATE [Concomitant]
     Indication: HYPERTENSION
     Dosage: UNK
     Dates: start: 20090427
  8. MOXONIDINE [Concomitant]
     Indication: HYPERTENSION
     Dates: start: 20110708
  9. OMEPRAZOLE [Concomitant]
     Indication: GASTROINTESTINAL DISORDER
     Route: 048
     Dates: start: 20110819
  10. MAGNESIUM [Concomitant]
     Indication: VENTRICULAR EXTRASYSTOLES
     Route: 048
     Dates: start: 20090925
  11. CALCIUM CHANNEL BLOCKERS [Concomitant]
     Dosage: UNK
     Dates: start: 20110701
  12. FALITHROM [Concomitant]
     Indication: ATRIAL FIBRILLATION
     Dates: start: 20080915
  13. SIMVASTATIN [Concomitant]
     Indication: HYPERLIPIDAEMIA
     Route: 048
     Dates: start: 20110819
  14. ALLOPURINOL [Concomitant]
     Indication: HYPERURICAEMIA
     Route: 048
     Dates: start: 20090327

REACTIONS (2)
  - BLOOD PRESSURE INCREASED [None]
  - SYNCOPE [None]
